FAERS Safety Report 19654587 (Version 1)
Quarter: 2021Q3

REPORT INFORMATION
  Report Type: Report from Study
  Country: CA (occurrence: CA)
  Receive Date: 20210804
  Receipt Date: 20210804
  Transmission Date: 20211014
  Serious: Yes (Hospitalization, Disabling, Other)
  Sender: FDA-Public Use
  Company Number: CA-VALIDUS PHARMACEUTICALS LLC-CA-VDP-2021-000248

PATIENT
  Age: 58 Year
  Sex: Female

DRUGS (14)
  1. DUPILUMAB [Suspect]
     Active Substance: DUPILUMAB
     Indication: ASTHMA
     Dosage: 300 MILLIGRAM, QOW
     Route: 058
     Dates: start: 2021
  2. DUPILUMAB [Suspect]
     Active Substance: DUPILUMAB
     Dosage: 300 MILLIGRAM, Q4WK
     Route: 058
     Dates: start: 20210415
  3. MAGNESIUM [Concomitant]
     Active Substance: MAGNESIUM
     Dosage: UNK
     Route: 065
  4. CYCLOSPORINE. [Suspect]
     Active Substance: CYCLOSPORINE
     Dosage: 25 MILLIGRAM
     Route: 065
  5. LOVENOX [Concomitant]
     Active Substance: ENOXAPARIN SODIUM
     Dosage: UNK
     Route: 065
  6. DUPILUMAB [Suspect]
     Active Substance: DUPILUMAB
     Indication: DERMATITIS ATOPIC
     Dosage: 600 MILLIGRAM
     Route: 058
     Dates: start: 20201120, end: 20201120
  7. LASIX [Suspect]
     Active Substance: FUROSEMIDE
     Indication: FLUID RETENTION
     Dosage: UNK
     Route: 065
     Dates: start: 202008
  8. DERMOVATE [Concomitant]
     Active Substance: CLOBETASOL
     Dosage: UNK
     Route: 065
  9. LASIX [Suspect]
     Active Substance: FUROSEMIDE
     Dosage: UNK
     Route: 065
     Dates: start: 20201128, end: 20201204
  10. CYCLOSPORINE. [Suspect]
     Active Substance: CYCLOSPORINE
     Indication: PRURITUS
     Dosage: UNK
     Route: 048
  11. CYCLOSPORINE. [Suspect]
     Active Substance: CYCLOSPORINE
     Dosage: 75 MILLIGRAM, LOWERED HER DOSE TO 75 MG INSTEAD OF 100 MG
     Route: 065
  12. HYDROCORTISONE. [Concomitant]
     Active Substance: HYDROCORTISONE
     Dosage: UNK
     Route: 065
  13. DUPILUMAB [Suspect]
     Active Substance: DUPILUMAB
     Dosage: 300 MILLIGRAM, Q3WK
     Route: 058
     Dates: start: 20210415
  14. CYCLOSPORINE. [Suspect]
     Active Substance: CYCLOSPORINE
     Dosage: 100 MILLIGRAM
     Route: 065

REACTIONS (72)
  - Polyuria [Not Recovered/Not Resolved]
  - Fall [Unknown]
  - Blood magnesium abnormal [Not Recovered/Not Resolved]
  - Rash pruritic [Unknown]
  - Paraesthesia [Unknown]
  - Rash papular [Not Recovered/Not Resolved]
  - Rash erythematous [Recovering/Resolving]
  - Dry eye [Unknown]
  - Joint swelling [Not Recovered/Not Resolved]
  - Injection site erythema [Recovering/Resolving]
  - Pain in extremity [Not Recovered/Not Resolved]
  - Arthritis [Unknown]
  - Erythema [Recovering/Resolving]
  - Injection site swelling [Recovering/Resolving]
  - Immunoglobulins abnormal [Unknown]
  - Skin burning sensation [Unknown]
  - Swelling face [Unknown]
  - Burning sensation [Unknown]
  - Oedema peripheral [Recovering/Resolving]
  - Swelling of eyelid [Unknown]
  - Blood pressure decreased [Unknown]
  - Pain of skin [Unknown]
  - Inflammation [Not Recovered/Not Resolved]
  - Oedema [Not Recovered/Not Resolved]
  - Therapeutic response unexpected [Unknown]
  - Adverse drug reaction [Unknown]
  - Myalgia [Unknown]
  - Contusion [Recovering/Resolving]
  - Skin lesion [Not Recovered/Not Resolved]
  - Hypoaesthesia [Unknown]
  - Visual impairment [Unknown]
  - Joint stiffness [Unknown]
  - Dermatitis atopic [Not Recovered/Not Resolved]
  - Off label use [Unknown]
  - Erythema of eyelid [Unknown]
  - Peripheral swelling [Unknown]
  - Skin disorder [Unknown]
  - Eye irritation [Not Recovered/Not Resolved]
  - Discomfort [Recovering/Resolving]
  - Pain [Recovering/Resolving]
  - Withdrawal syndrome [Not Recovered/Not Resolved]
  - Injection site discomfort [Recovered/Resolved]
  - Therapeutic response decreased [Unknown]
  - Intentional dose omission [Unknown]
  - Grip strength decreased [Not Recovered/Not Resolved]
  - Pruritus [Not Recovered/Not Resolved]
  - Limb discomfort [Unknown]
  - Acne [Unknown]
  - Dry skin [Unknown]
  - Condition aggravated [Unknown]
  - Hypokinesia [Unknown]
  - Injection site pain [Not Recovered/Not Resolved]
  - Eye pruritus [Unknown]
  - Hip fracture [Unknown]
  - Hypertension [Not Recovered/Not Resolved]
  - Scratch [Recovered/Resolved]
  - Ocular hyperaemia [Recovering/Resolving]
  - Ocular discomfort [Unknown]
  - Malaise [Unknown]
  - Procedural pain [Unknown]
  - Conjunctivitis [Unknown]
  - Ill-defined disorder [Unknown]
  - Reaction to preservatives [Not Recovered/Not Resolved]
  - Blood magnesium decreased [Unknown]
  - Musculoskeletal stiffness [Not Recovered/Not Resolved]
  - Mobility decreased [Not Recovered/Not Resolved]
  - Fluid retention [Unknown]
  - Anxiety [Not Recovered/Not Resolved]
  - Injury [Unknown]
  - Back pain [Unknown]
  - Hypoaesthesia [Not Recovered/Not Resolved]
  - Rash [Unknown]

NARRATIVE: CASE EVENT DATE: 2020
